FAERS Safety Report 19092108 (Version 2)
Quarter: 2021Q2

REPORT INFORMATION
  Report Type: Report from Study
  Country: RO (occurrence: RO)
  Receive Date: 20210405
  Receipt Date: 20210405
  Transmission Date: 20210717
  Serious: Yes (Hospitalization)
  Sender: FDA-Public Use
  Company Number: RO-GLAXOSMITHKLINE-RO2021GSK072055

PATIENT
  Age: 53 Year
  Sex: Female
  Weight: 57.2 kg

DRUGS (2)
  1. LEVOTIROXINA (LEVOTHYROXINE SODIUM) [Concomitant]
     Active Substance: LEVOTHYROXINE SODIUM
     Indication: HYPOTHYROIDISM
     Dosage: 100
     Route: 048
     Dates: start: 2018
  2. NITROFURANTOIN (NON?GSK) [Suspect]
     Active Substance: NITROFURANTOIN
     Indication: URINARY TRACT INFECTION
     Dosage: ONLY ONE DOSE (3 PILLS) OF STUDY DRUG  WERE ADMINISTRATED
     Dates: start: 20210324, end: 20210324

REACTIONS (1)
  - Food intolerance [Recovered/Resolved]

NARRATIVE: CASE EVENT DATE: 20210324
